FAERS Safety Report 8779417 (Version 3)
Quarter: 2012Q4

REPORT INFORMATION
  Report Type: 
  Country: US (occurrence: US)
  Receive Date: 20120912
  Receipt Date: 20121010
  Transmission Date: 20130627
  Serious: Yes (Other)
  Sender: FDA-Public Use
  Company Number: US-PFIZER INC-2012223099

PATIENT
  Age: 77 Year
  Sex: Female
  Weight: 58.05 kg

DRUGS (8)
  1. CELEBREX [Suspect]
     Indication: PAIN IN EXTREMITY
     Dosage: 200 mg, 1x/day
     Route: 048
     Dates: start: 2002
  2. CELEBREX [Suspect]
     Indication: MUSCULOSKELETAL DISCOMFORT
  3. ZOLOFT [Suspect]
     Indication: DEPRESSION
     Dosage: 50mg in the morning by cutting 100mg tablet into half and 100mg at night
     Route: 048
     Dates: start: 2002
  4. ZOLOFT [Suspect]
     Indication: ANXIETY
  5. TYLENOL [Suspect]
     Indication: ARTHRITIS
     Dosage: UNK
     Dates: start: 2012
  6. URSODIOL [Concomitant]
     Indication: BILIARY CIRRHOSIS PRIMARY
     Dosage: 300 mg, 3x/day
  7. URSODIOL [Concomitant]
     Dosage: UNK
  8. PREDNISONE [Concomitant]
     Indication: PAIN
     Dosage: UNK

REACTIONS (8)
  - Fall [Unknown]
  - Loss of consciousness [Unknown]
  - Lumbar vertebral fracture [Unknown]
  - Hand fracture [Unknown]
  - Nerve block [Unknown]
  - Post-traumatic stress disorder [Unknown]
  - Gastric haemorrhage [Unknown]
  - Drug dose omission [Unknown]
